FAERS Safety Report 7531890-1 (Version None)
Quarter: 2011Q2

REPORT INFORMATION
  Report Type: 
  Country: None (occurrence: None)
  Receive Date: 20110608
  Receipt Date: 20110525
  Transmission Date: 20111010
  Serious: Yes (Other)
  Sender: FDA-Public Use
  Company Number: US-BAYER-200940444NA

PATIENT
  Age: 77 Year
  Sex: Female
  Weight: 53.515 kg

DRUGS (10)
  1. LANOXIN [Concomitant]
     Dosage: 0.125 MG, QD
     Route: 048
  2. LASIX [Concomitant]
     Dosage: 20 MG, QD
     Route: 048
  3. ACETYLSALICYLIC ACID SRT [Concomitant]
     Route: 048
  4. NITROSTAT [Concomitant]
     Dosage: 0.4 MG AS NEEDED
     Route: 060
  5. NORVASC [Concomitant]
     Dosage: 5 MG, QD
     Route: 048
  6. SYNTHROID [Concomitant]
     Dosage: 0.88 MG, QD
     Route: 048
  7. HUMULIN N [Concomitant]
     Dosage: 12 UNITS EVERY
     Route: 058
  8. HUMULIN N [Concomitant]
     Dosage: 10 UNITS EVERY EVENING
     Route: 058
  9. PRAVACHOL [Concomitant]
     Dosage: 0 MG, QD
     Route: 048
  10. TRASYLOL [Suspect]
     Indication: CORONARY ARTERY BYPASS
     Dosage: UNK
     Route: 042
     Dates: start: 20011101

REACTIONS (11)
  - FEAR [None]
  - INJURY [None]
  - STRESS [None]
  - ANXIETY [None]
  - RENAL FAILURE [None]
  - RENAL IMPAIRMENT [None]
  - RENAL INJURY [None]
  - EMOTIONAL DISTRESS [None]
  - UNEVALUABLE EVENT [None]
  - PAIN [None]
  - ANHEDONIA [None]
